FAERS Safety Report 4727840-3 (Version None)
Quarter: 2005Q3

REPORT INFORMATION
  Report Type: 
  Country: None (occurrence: None)
  Receive Date: 20050728
  Receipt Date: 20050506
  Transmission Date: 20060218
  Serious: Yes (Hospitalization, Disabling)
  Sender: FDA-Public Use
  Company Number: US-MERCK-0505USA00878

PATIENT
  Age: 54 Year
  Sex: Male
  Weight: 95 kg

DRUGS (7)
  1. VIOXX [Suspect]
     Indication: SPONDYLITIS
     Route: 048
     Dates: start: 20010101, end: 20020105
  2. VIOXX [Suspect]
     Route: 048
     Dates: start: 20020106, end: 20040401
  3. VIOXX [Suspect]
     Route: 048
     Dates: start: 20040419, end: 20040430
  4. VIOXX [Suspect]
     Route: 048
     Dates: start: 20040501, end: 20040930
  5. LOTENSIN [Concomitant]
     Route: 065
     Dates: start: 19950101
  6. LIPITOR [Concomitant]
     Route: 065
     Dates: end: 20041201
  7. PRILOSEC [Concomitant]
     Route: 065

REACTIONS (7)
  - CERUMEN IMPACTION [None]
  - CHEST WALL PAIN [None]
  - CONTUSION [None]
  - CORONARY ARTERY DISEASE [None]
  - DYSPNOEA AT REST [None]
  - FATIGUE [None]
  - MYOCARDIAL INFARCTION [None]
